FAERS Safety Report 4523921-8 (Version None)
Quarter: 2004Q4

REPORT INFORMATION
  Report Type: 
  Country: None (occurrence: None)
  Receive Date: 20041209
  Receipt Date: 20041201
  Transmission Date: 20050328
  Serious: Yes (Other)
  Sender: FDA-Public Use
  Company Number: STA-AE-04-MTX-601

PATIENT
  Age: 75 Year
  Sex: Female

DRUGS (4)
  1. METHOTREXATE [Suspect]
     Indication: RHEUMATOID ARTHRITIS
     Dates: start: 19870101, end: 20041105
  2. PREDNISONE [Concomitant]
  3. FOSAMAX [Concomitant]
  4. FOLIC ACID [Concomitant]

REACTIONS (1)
  - BLOOD CREATININE INCREASED [None]
